FAERS Safety Report 11823744 (Version 1)
Quarter: 2015Q4

REPORT INFORMATION
  Report Type: Report from Study
  Country: CO (occurrence: CO)
  Receive Date: 20151210
  Receipt Date: 20151210
  Transmission Date: 20160305
  Serious: Yes (Hospitalization, Other)
  Sender: FDA-Public Use
  Company Number: CO-JNJFOC-20151204463

PATIENT
  Age: 22 Year
  Sex: Male
  Weight: 50 kg

DRUGS (1)
  1. REMICADE [Suspect]
     Active Substance: INFLIXIMAB
     Indication: CROHN^S DISEASE
     Route: 042
     Dates: start: 20150714, end: 20150714

REACTIONS (9)
  - Groin abscess [Not Recovered/Not Resolved]
  - Escherichia infection [Not Recovered/Not Resolved]
  - Intestinal resection [Not Recovered/Not Resolved]
  - Heart rate decreased [Not Recovered/Not Resolved]
  - Leukaemia [Not Recovered/Not Resolved]
  - Pyrexia [Recovered/Resolved]
  - Haemoglobin decreased [Not Recovered/Not Resolved]
  - Platelet count decreased [Not Recovered/Not Resolved]
  - Relapsing fever [Recovered/Resolved]

NARRATIVE: CASE EVENT DATE: 20150720
